FAERS Safety Report 24847014 (Version 1)
Quarter: 2025Q1

REPORT INFORMATION
  Report Type: Report from Study
  Country: CA (occurrence: CA)
  Receive Date: 20250115
  Receipt Date: 20250115
  Transmission Date: 20250409
  Serious: Yes (Other)
  Sender: ABBVIE
  Company Number: CA-ABBVIE-6078424

PATIENT
  Age: 84 Year
  Sex: Female

DRUGS (1)
  1. SKYRIZI [Suspect]
     Active Substance: RISANKIZUMAB-RZAA
     Indication: Psoriasis
     Route: 058
     Dates: start: 20231018

REACTIONS (7)
  - Breast cancer [Unknown]
  - Musculoskeletal disorder [Unknown]
  - Osteoarthritis [Unknown]
  - Muscular weakness [Unknown]
  - Finger deformity [Unknown]
  - Rotator cuff syndrome [Unknown]
  - Joint swelling [Unknown]

NARRATIVE: CASE EVENT DATE: 20240401
